FAERS Safety Report 5284504-8 (Version None)
Quarter: 2007Q1

REPORT INFORMATION
  Report Type: 
  Country: None (occurrence: None)
  Receive Date: 20061226
  Receipt Date: 20060921
  Transmission Date: 20070707
  Serious: No
  Sender: FDA-Public Use
  Company Number: 2006PV021675

PATIENT
  Age: 53 Year
  Sex: Female
  Weight: 113.2859 kg

DRUGS (2)
  1. SYMLIN [Suspect]
     Indication: INSULIN RESISTANT DIABETES
     Dosage: SEE IMAGE
     Route: 058
     Dates: start: 20060731, end: 20060101
  2. SYMLIN [Suspect]
     Indication: INSULIN RESISTANT DIABETES
     Dosage: SEE IMAGE
     Route: 058
     Dates: start: 20060101

REACTIONS (4)
  - DRUG INEFFECTIVE FOR UNAPPROVED INDICATION [None]
  - INJECTION SITE IRRITATION [None]
  - INJECTION SITE PRURITUS [None]
  - INJECTION SITE RASH [None]
